FAERS Safety Report 7958301-6 (Version None)
Quarter: 2011Q4

REPORT INFORMATION
  Report Type: 
  Country: None (occurrence: None)
  Receive Date: 20111205
  Receipt Date: 20111123
  Transmission Date: 20120403
  Serious: Yes (Other)
  Sender: FDA-Public Use
  Company Number: CH-COVIDIEN/TYCO HEALTHCARE/MALLINCKRODT-T201102785

PATIENT
  Age: 28 Year
  Sex: Male

DRUGS (1)
  1. METHYLIN [Suspect]
     Indication: ATTENTION DEFICIT/HYPERACTIVITY DISORDER
     Dosage: 270 MG
     Route: 048

REACTIONS (7)
  - HALLUCINATION [None]
  - TOXICITY TO VARIOUS AGENTS [None]
  - HYPERTENSION [None]
  - DRUG ABUSE [None]
  - TACHYCARDIA [None]
  - SUICIDAL IDEATION [None]
  - AGITATION [None]
